FAERS Safety Report 14770067 (Version 1)
Quarter: 2018Q2

REPORT INFORMATION
  Report Type: Spontaneous
  Country: US (occurrence: US)
  Receive Date: 20180417
  Receipt Date: 20180417
  Transmission Date: 20180711
  Serious: Yes (Other)
  Sender: FDA-Public Use
  Company Number: US-BAUSCH-BL-2018-009764

PATIENT
  Age: 47 Year
  Sex: Female
  Weight: 61.29 kg

DRUGS (1)
  1. LOTEMAX [Suspect]
     Active Substance: LOTEPREDNOL ETABONATE
     Indication: POSTOPERATIVE CARE
     Route: 047

REACTIONS (3)
  - Transplant rejection [Not Recovered/Not Resolved]
  - Product physical consistency issue [Unknown]
  - Product container issue [Unknown]

NARRATIVE: CASE EVENT DATE: 201803
